FAERS Safety Report 17046940 (Version 5)
Quarter: 2020Q2

REPORT INFORMATION
  Report Type: Spontaneous
  Country: US (occurrence: US)
  Receive Date: 20191119
  Receipt Date: 20200407
  Transmission Date: 20200713
  Serious: Yes (Other)
  Sender: FDA-Public Use
  Company Number: US-AMGEN INC.-USASP2019190755

PATIENT
  Sex: Female

DRUGS (1)
  1. AIMOVIG [Suspect]
     Active Substance: ERENUMAB-AOOE
     Indication: MIGRAINE
     Dosage: UNK
     Route: 065
     Dates: end: 201909

REACTIONS (17)
  - Nervous system disorder [Not Recovered/Not Resolved]
  - Nausea [Unknown]
  - Gastrointestinal disorder [Not Recovered/Not Resolved]
  - Insulin resistance [Not Recovered/Not Resolved]
  - Depression [Recovering/Resolving]
  - Emergency care [Not Recovered/Not Resolved]
  - Loss of personal independence in daily activities [Not Recovered/Not Resolved]
  - Fatigue [Not Recovered/Not Resolved]
  - Unevaluable event [Unknown]
  - Aspartate aminotransferase increased [Not Recovered/Not Resolved]
  - Anxiety [Not Recovered/Not Resolved]
  - Blood calcium increased [Not Recovered/Not Resolved]
  - Panic attack [Unknown]
  - Vision blurred [Not Recovered/Not Resolved]
  - Vertigo [Not Recovered/Not Resolved]
  - Dizziness [Recovering/Resolving]
  - Myalgia [Not Recovered/Not Resolved]
